FAERS Safety Report 6030282-4 (Version None)
Quarter: 2009Q1

REPORT INFORMATION
  Report Type: 
  Country: None (occurrence: None)
  Receive Date: 20090105
  Receipt Date: 20090105
  Transmission Date: 20090719
  Serious: Yes (Other)
  Sender: FDA-Public Use
  Company Number: None

PATIENT
  Age: 35 Year
  Sex: Male
  Weight: 90.7194 kg

DRUGS (1)
  1. PAXIL [Suspect]
     Indication: SOCIAL PHOBIA
     Dosage: 40MG DAILY PO
     Route: 048
     Dates: start: 19980501, end: 20081001

REACTIONS (12)
  - AGORAPHOBIA [None]
  - AKATHISIA [None]
  - ANOREXIA [None]
  - ANXIETY [None]
  - AUTONOMIC NERVOUS SYSTEM IMBALANCE [None]
  - DEPERSONALISATION [None]
  - DRUG WITHDRAWAL SYNDROME [None]
  - HALLUCINATION [None]
  - INSOMNIA [None]
  - MIGRAINE [None]
  - SEBORRHOEIC DERMATITIS [None]
  - TINNITUS [None]
